FAERS Safety Report 6502269-6 (Version None)
Quarter: 2009Q4

REPORT INFORMATION
  Report Type: 
  Country: None (occurrence: None)
  Receive Date: 20091216
  Receipt Date: 20091112
  Transmission Date: 20100525
  Serious: No
  Sender: FDA-Public Use
  Company Number: US-ABBOTT-09P-163-0609037-00

PATIENT
  Sex: Female
  Weight: 85.352 kg

DRUGS (5)
  1. TRILIPIX [Suspect]
     Indication: BLOOD CHOLESTEROL INCREASED
     Dates: start: 20091030, end: 20091110
  2. TRILIPIX [Suspect]
     Indication: BLOOD TRIGLYCERIDES INCREASED
  3. METFORMIN HCL [Concomitant]
     Indication: DIABETES MELLITUS
     Dates: start: 20080101
  4. GLIPIZIDE [Concomitant]
     Indication: DIABETES MELLITUS
     Dates: start: 20080101
  5. PREDNISONE [Concomitant]
     Indication: DRUG USE FOR UNKNOWN INDICATION

REACTIONS (3)
  - ABASIA [None]
  - ARTHRALGIA [None]
  - NECK PAIN [None]
